FAERS Safety Report 6797406 (Version 3)
Quarter: 2014Q3

REPORT INFORMATION
  Report Type: Spontaneous
  Country: AU (occurrence: AU)
  Receive Date: 20081027
  Receipt Date: 20140821
  Transmission Date: 20150326
  Serious: Yes (Other)
  Sender: FDA-Public Use
  Company Number: AU-ALLERGAN-0813429US

PATIENT
  Age: 55 Year
  Sex: Female

DRUGS (5)
  1. DUCENE [Suspect]
     Active Substance: DIAZEPAM
     Indication: FAMILY STRESS
  2. DUCENE [Suspect]
     Active Substance: DIAZEPAM
     Indication: ANXIETY
     Dosage: 1 -2 TABLETS, ORAL, PM, } 5 YEARS
     Route: 048
  3. VENTOLIN [Concomitant]
     Active Substance: ALBUTEROL SULFATE
     Indication: ASTHMA
     Dosage: UNK, PRN
     Route: 055
  4. LUMIGAN [Suspect]
     Active Substance: BIMATOPROST
     Indication: GLAUCOMA
     Dosage: 1 GTT, QPM
     Route: 047
     Dates: start: 20081005
  5. SERETIDE [Concomitant]
     Active Substance: FLUTICASONE FUROATE\SALMETEROL XINAFOATE
     Indication: ASTHMA
     Dosage: 2 PUFFS INHALED AM AND PM
     Route: 055

REACTIONS (4)
  - Fatigue [Unknown]
  - Ocular hyperaemia [Recovered/Resolved]
  - Sleep disorder [Recovering/Resolving]
  - Dyspnoea [Recovering/Resolving]

NARRATIVE: CASE EVENT DATE: 20081005
